FAERS Safety Report 22631826 (Version 6)
Quarter: 2023Q4

REPORT INFORMATION
  Report Type: Report from Study
  Country: US (occurrence: US)
  Receive Date: 20230623
  Receipt Date: 20231029
  Transmission Date: 20240110
  Serious: Yes (Life-Threatening, Hospitalization, Other)
  Sender: FDA-Public Use
  Company Number: US-002147023-NVSC2023US139899

PATIENT
  Sex: Female

DRUGS (4)
  1. MEKINIST [Suspect]
     Active Substance: TRAMETINIB DIMETHYL SULFOXIDE
     Indication: Malignant melanoma
     Dosage: UNK
     Route: 065
  2. TAFINLAR [Suspect]
     Active Substance: DABRAFENIB MESYLATE
     Indication: Malignant melanoma
     Dosage: UNK
     Route: 065
  3. XIIDRA [Suspect]
     Active Substance: LIFITEGRAST
     Indication: Dry eye
     Dosage: UNK, BID (TOPICAL)
     Route: 047
     Dates: start: 20160311
  4. XIIDRA [Suspect]
     Active Substance: LIFITEGRAST
     Dosage: UNK, BID
     Route: 065
     Dates: start: 20170405

REACTIONS (5)
  - Illness [Unknown]
  - Loss of consciousness [Unknown]
  - Metastatic malignant melanoma [Unknown]
  - Neoplasm malignant [Unknown]
  - Feeling abnormal [Unknown]
